FAERS Safety Report 20123985 (Version 2)
Quarter: 2022Q1

REPORT INFORMATION
  Report Type: Spontaneous
  Country: US (occurrence: US)
  Receive Date: 20211129
  Receipt Date: 20220208
  Transmission Date: 20220424
  Serious: No
  Sender: FDA-Public Use
  Company Number: US-ORGANON-O2111USA002125

PATIENT
  Age: 17 Year
  Sex: Female
  Weight: 97.052 kg

DRUGS (1)
  1. NEXPLANON [Suspect]
     Active Substance: ETONOGESTREL
     Indication: Contraception
     Dosage: 1 IMPLANT, INSERTION LOCATION: LEFT ARM, DOSE/FREQUENCY: ONE EVERY THREE YEARS
     Route: 059
     Dates: start: 20200520

REACTIONS (4)
  - Heavy menstrual bleeding [Unknown]
  - Device issue [Not Recovered/Not Resolved]
  - Complication of device removal [Not Recovered/Not Resolved]
  - Device deployment issue [Not Recovered/Not Resolved]

NARRATIVE: CASE EVENT DATE: 20200520
